FAERS Safety Report 14943084 (Version 1)
Quarter: 2018Q2

REPORT INFORMATION
  Report Type: Spontaneous
  Country: US (occurrence: US)
  Receive Date: 20180528
  Receipt Date: 20180528
  Transmission Date: 20180711
  Serious: Yes (Other)
  Sender: FDA-Public Use
  Company Number: US-CIPLA LTD.-2018US18162

PATIENT

DRUGS (8)
  1. AMLODIPINE [Suspect]
     Active Substance: AMLODIPINE BESYLATE
     Indication: ACUTE MYOCARDIAL INFARCTION
     Dosage: 2.5 MG, DAILY
     Route: 065
  2. NIFEDIPINE XL [Suspect]
     Active Substance: NIFEDIPINE
     Dosage: 90 MG, DAILY
     Route: 065
  3. NIFEDIPINE XL [Suspect]
     Active Substance: NIFEDIPINE
     Dosage: 30 MG, BID
  4. NIFEDIPINE XL [Suspect]
     Active Substance: NIFEDIPINE
     Dosage: 30 MG, BID
     Route: 065
  5. ISOSORBIDE MONONITRATE. [Suspect]
     Active Substance: ISOSORBIDE MONONITRATE
     Dosage: 30 MG, DAILY
  6. NIFEDIPINE XL [Suspect]
     Active Substance: NIFEDIPINE
     Indication: ACUTE MYOCARDIAL INFARCTION
     Dosage: 30 MG, DAILY
     Route: 048
  7. NITROGLYCERIN. [Suspect]
     Active Substance: NITROGLYCERIN
     Indication: CHEST PAIN
     Dosage: UNK
     Route: 060
  8. ISOSORBIDE MONONITRATE. [Suspect]
     Active Substance: ISOSORBIDE MONONITRATE
     Indication: CHEST PAIN
     Dosage: 30 MG, DAILY
     Route: 065

REACTIONS (4)
  - Premature delivery [Unknown]
  - Chest pain [Unknown]
  - Exposure during pregnancy [Unknown]
  - Headache [Unknown]
